FAERS Safety Report 12767984 (Version 1)
Quarter: 2016Q3

REPORT INFORMATION
  Report Type: Spontaneous
  Country: US (occurrence: US)
  Receive Date: 20160921
  Receipt Date: 20160921
  Transmission Date: 20161109
  Serious: No
  Sender: FDA-Public Use
  Company Number: US-ROMARKLABS-2015-US-000076

PATIENT
  Age: 63 Year
  Sex: Male
  Weight: 72.58 kg

DRUGS (5)
  1. MALARONE [Concomitant]
     Active Substance: ATOVAQUONE\PROGUANIL HYDROCHLORIDE
     Indication: BABESIOSIS
     Dosage: 250 MG TWICE PER DAY
     Route: 048
     Dates: start: 20150511
  2. BACTRIM DS [Concomitant]
     Active Substance: SULFAMETHOXAZOLE\TRIMETHOPRIM
     Indication: BABESIOSIS
     Dosage: ONE TABLET TWICE PER DAY
     Route: 048
     Dates: start: 20140505
  3. NYSTATIN. [Concomitant]
     Active Substance: NYSTATIN
     Indication: CANDIDA INFECTION
     Dosage: 2 TABLETS TWICE PER DAY
     Route: 048
     Dates: start: 20140306
  4. ALINIA [Suspect]
     Active Substance: NITAZOXANIDE
     Indication: BABESIOSIS
     Dosage: 1 TABLET TWICE PER DAY
     Route: 048
     Dates: start: 20150713, end: 20150718
  5. NO DRUG NAME [Concomitant]
     Indication: LYME DISEASE
     Dosage: 3 TABLETS TWICE PER DAY
     Route: 048
     Dates: start: 20150511

REACTIONS (9)
  - Mouth swelling [Recovered/Resolved]
  - Haemorrhoidal haemorrhage [Recovered/Resolved]
  - Abdominal distension [Recovered/Resolved]
  - Flatulence [Recovered/Resolved]
  - Gastrooesophageal reflux disease [Recovered/Resolved]
  - Diarrhoea [Recovered/Resolved]
  - Swollen tongue [Recovered/Resolved]
  - Stomatitis [Recovered/Resolved]
  - Gastric ulcer [Recovered/Resolved]

NARRATIVE: CASE EVENT DATE: 20150716
